FAERS Safety Report 8839763 (Version 1)
Quarter: 2012Q4

REPORT INFORMATION
  Report Type: Spontaneous
  Country: FR (occurrence: None)
  Receive Date: 20121011
  Receipt Date: 20121011
  Transmission Date: 20130627
  Serious: Yes (Life-Threatening, Hospitalization)
  Sender: FDA-Public Use
  Company Number: None

PATIENT
  Age: 89 Year
  Sex: Female

DRUGS (10)
  1. ACEON (PERINDOPRIL ERBUMINE) TABLET [Suspect]
     Indication: HYPERTENSION ARTERIAL
     Route: 048
     Dates: end: 20120711
  2. ACEON (PERINDOPRIL ERBUMINE) TABLET [Suspect]
     Indication: HYPERTENSION ARTERIAL
     Dates: start: 20120718, end: 20120720
  3. DIFFU K [Suspect]
     Indication: HYPERTENSION ARTERIAL
     Route: 048
     Dates: end: 20120711
  4. AMLOR (AMLODIPINE BESILATE) [Concomitant]
  5. CARDENSIEL (BISOPROLOL FUMARATE) [Concomitant]
  6. KARDEGIC (ACETYLSALICYLATE LYSINE) [Concomitant]
  7. DIAFUSOR (GLYCERYL TRINITRATE) [Concomitant]
  8. GABAPENTIN (GABAPENTIN) [Concomitant]
  9. INEXIUM (ESOMEPRAZOLE MAGNESIUM) [Concomitant]
  10. DIAMICRON (GLICLAZIDE) [Concomitant]

REACTIONS (6)
  - Dehydration [None]
  - Acute pulmonary oedema [None]
  - Atrial fibrillation [None]
  - Hyperkalaemia [None]
  - Renal failure acute [None]
  - Bradycardia [None]
